FAERS Safety Report 23218339 (Version 1)
Quarter: 2023Q4

REPORT INFORMATION
  Report Type: Spontaneous
  Country: IN (occurrence: US)
  Receive Date: 20231122
  Receipt Date: 20231122
  Transmission Date: 20240110
  Serious: No
  Sender: FDA-Public Use
  Company Number: IN-AUROBINDO-AUR-APL-2023-035436

PATIENT
  Age: 69 Year
  Sex: Female
  Weight: 74.8 kg

DRUGS (4)
  1. RISEDRONATE SODIUM [Suspect]
     Active Substance: RISEDRONATE SODIUM
     Indication: Osteoporosis
     Dosage: UNK
     Route: 065
     Dates: start: 202009, end: 20230516
  2. RISEDRONATE SODIUM [Suspect]
     Active Substance: RISEDRONATE SODIUM
     Dosage: UNK (150MG MONTHLY WITH PLAIN WATER 30 MINUTES BEFORE FIRST  FOOD OF THE DAY, SIT UPRIGHT FOR 30 MIN
     Route: 065
     Dates: start: 20230516, end: 20230516
  3. HYDROCHLOROTHIAZIDE [Concomitant]
     Active Substance: HYDROCHLOROTHIAZIDE
     Indication: Product used for unknown indication
     Dosage: 12.5 MILLIGRAM, TWO TIMES A DAY
     Route: 065
  4. BENADRYL [Concomitant]
     Active Substance: DIPHENHYDRAMINE HYDROCHLORIDE
     Indication: Product used for unknown indication
     Dosage: UNK
     Route: 065

REACTIONS (5)
  - Pyrexia [Unknown]
  - Diarrhoea [Unknown]
  - Rash [Unknown]
  - Illness [Unknown]
  - Product quality issue [Unknown]

NARRATIVE: CASE EVENT DATE: 20230517
